FAERS Safety Report 7941210-6 (Version None)
Quarter: 2011Q4

REPORT INFORMATION
  Report Type: 
  Country: None (occurrence: None)
  Receive Date: 20111128
  Receipt Date: 20111116
  Transmission Date: 20120403
  Serious: Yes (Hospitalization)
  Sender: FDA-Public Use
  Company Number: FR-JNJFOC-20111004910

PATIENT
  Sex: Female
  Weight: 74 kg

DRUGS (3)
  1. VALIUM [Concomitant]
     Indication: ANXIETY
     Route: 048
  2. LEPTICUR [Concomitant]
     Indication: EXTRAPYRAMIDAL DISORDER
     Route: 048
  3. RISPERDAL CONSTA [Suspect]
     Indication: PSYCHOTIC DISORDER
     Route: 030
     Dates: start: 20110913, end: 20110928

REACTIONS (2)
  - VENOUS THROMBOSIS [None]
  - PULMONARY EMBOLISM [None]
